FAERS Safety Report 9710737 (Version 2)
Quarter: 2013Q4

REPORT INFORMATION
  Report Type: Spontaneous
  Country: US (occurrence: US)
  Receive Date: 20131126
  Receipt Date: 20131126
  Transmission Date: 20140711
  Serious: No
  Sender: FDA-Public Use
  Company Number: US-BRISTOL-MYERS SQUIBB COMPANY-18961508

PATIENT
  Age: 59 Year
  Sex: Female
  Weight: 81.63 kg

DRUGS (9)
  1. BYETTA [Suspect]
     Indication: TYPE 2 DIABETES MELLITUS
     Route: 058
     Dates: start: 20130513, end: 20130530
  2. METFORMIN HCL [Suspect]
  3. GLIPIZIDE [Suspect]
  4. ATENOLOL [Concomitant]
  5. CRESTOR [Concomitant]
  6. HYDROCHLOROTHIAZIDE [Concomitant]
  7. LEVOTHYROXINE [Concomitant]
  8. LOSARTAN [Concomitant]
  9. VITAMINS [Concomitant]

REACTIONS (2)
  - Dermatitis allergic [Recovered/Resolved]
  - Blood glucose increased [Recovering/Resolving]
